FAERS Safety Report 25689017 (Version 1)
Quarter: 2025Q3

REPORT INFORMATION
  Report Type: Spontaneous
  Country: BR (occurrence: BR)
  Receive Date: 20250818
  Receipt Date: 20250818
  Transmission Date: 20251020
  Serious: Yes (Other)
  Sender: STRIDES
  Company Number: BR-STRIDES ARCOLAB LIMITED-2025SP010378

PATIENT
  Age: 50 Year
  Sex: Female

DRUGS (2)
  1. METHOTREXATE [Suspect]
     Active Substance: METHOTREXATE
     Indication: Chikungunya virus infection
     Route: 065
  2. METHOTREXATE [Suspect]
     Active Substance: METHOTREXATE
     Indication: Arthritis

REACTIONS (2)
  - Pneumonitis [Recovered/Resolved]
  - Off label use [Unknown]
